FAERS Safety Report 4279035-8 (Version None)
Quarter: 2004Q1

REPORT INFORMATION
  Report Type: 
  Country: None (occurrence: None)
  Receive Date: 20040122
  Receipt Date: 20040109
  Transmission Date: 20041129
  Serious: Yes (Other)
  Sender: FDA-Public Use
  Company Number: 2004001845

PATIENT
  Age: 76 Year
  Sex: Male

DRUGS (2)
  1. LOPID [Suspect]
     Indication: BLOOD CHOLESTEROL INCREASED
     Dosage: 1200 MG (BID), ORAL
     Route: 048
  2. GEMFIBROZIL [Suspect]
     Indication: ILL-DEFINED DISORDER

REACTIONS (3)
  - BODY HEIGHT DECREASED [None]
  - GASTRIC CANCER [None]
  - WEIGHT DECREASED [None]
